FAERS Safety Report 6536440-4 (Version None)
Quarter: 2010Q1

REPORT INFORMATION
  Report Type: 
  Country: None (occurrence: None)
  Receive Date: 20100113
  Receipt Date: 20100106
  Transmission Date: 20100710
  Serious: Yes (Other)
  Sender: FDA-Public Use
  Company Number: AR-JNJFOC-20091206349

PATIENT
  Sex: Male
  Weight: 14.5 kg

DRUGS (4)
  1. IBUPIRAC 2% [Suspect]
     Indication: NASOPHARYNGITIS
     Route: 048
  2. IBUPIRAC 2% [Suspect]
     Dosage: 1/2 BOTTLE
     Route: 048
  3. IBUPIRAC 2% [Suspect]
     Indication: PYREXIA
     Dosage: 1/2 BOTTLE
     Route: 048
  4. IBUPIRAC 2% [Suspect]
     Route: 048

REACTIONS (3)
  - ACCIDENTAL DRUG INTAKE BY CHILD [None]
  - BODY TEMPERATURE DECREASED [None]
  - HYPERSOMNIA [None]
